FAERS Safety Report 11772077 (Version 1)
Quarter: 2015Q4

REPORT INFORMATION
  Report Type: Spontaneous
  Country: US (occurrence: US)
  Receive Date: 20151124
  Receipt Date: 20151124
  Transmission Date: 20160304
  Serious: No
  Sender: FDA-Public Use
  Company Number: US-AKRON, INC.-1044553

PATIENT
  Age: 76 Year
  Sex: Male
  Weight: 65.46 kg

DRUGS (1)
  1. LACTULOSE. [Suspect]
     Active Substance: LACTULOSE
     Indication: AMMONIA DECREASED
     Route: 048

REACTIONS (3)
  - Abdominal pain upper [Unknown]
  - Muscle spasms [Unknown]
  - Abdominal discomfort [None]

NARRATIVE: CASE EVENT DATE: 20151111
